FAERS Safety Report 9223070 (Version 1)
Quarter: 2013Q2

REPORT INFORMATION
  Report Type: Spontaneous
  Country: US (occurrence: None)
  Receive Date: 20130409
  Receipt Date: 20130409
  Transmission Date: 20140414
  Serious: Yes (Other)
  Sender: FDA-Public Use
  Company Number: None

PATIENT
  Age: 66 Year
  Sex: Male
  Weight: 72.58 kg

DRUGS (2)
  1. RAPAFLO [Suspect]
     Indication: BLADDER DISORDER
     Dosage: ONE PILL, ONE  DAY, ORAL
     Route: 048
     Dates: start: 20130301, end: 20130313
  2. AVODART [Concomitant]

REACTIONS (3)
  - Headache [None]
  - Dizziness [None]
  - Blood pressure decreased [None]
